FAERS Safety Report 17541520 (Version 1)
Quarter: 2020Q1

REPORT INFORMATION
  Report Type: Spontaneous
  Country: US (occurrence: US)
  Receive Date: 20200313
  Receipt Date: 20200313
  Transmission Date: 20200409
  Serious: Yes (Hospitalization, Other)
  Sender: FDA-Public Use
  Company Number: US-NAPPMUNDI-USA-2020-0150272

PATIENT

DRUGS (1)
  1. OXYCONTIN [Suspect]
     Active Substance: OXYCODONE HYDROCHLORIDE
     Indication: PAIN
     Dosage: 85-90 MG, DAILY
     Route: 048
     Dates: start: 200604

REACTIONS (20)
  - Drug dependence [Unknown]
  - Anxiety [Unknown]
  - Hospitalisation [Unknown]
  - Mental disorder [Unknown]
  - Social anxiety disorder [Unknown]
  - Anger [Unknown]
  - Emotional distress [Unknown]
  - Skin irritation [Unknown]
  - Panic attack [Unknown]
  - Loss of personal independence in daily activities [Unknown]
  - Pruritus [Unknown]
  - Self-injurious ideation [Unknown]
  - Thinking abnormal [Unknown]
  - Judgement impaired [Unknown]
  - Drug withdrawal syndrome [Unknown]
  - Impaired reasoning [Unknown]
  - Procrastination [Unknown]
  - Libido decreased [Unknown]
  - Laziness [Unknown]
  - Drug tolerance increased [Unknown]
